FAERS Safety Report 22078990 (Version 2)
Quarter: 2023Q2

REPORT INFORMATION
  Report Type: Spontaneous
  Country: US (occurrence: US)
  Receive Date: 20230309
  Receipt Date: 20230529
  Transmission Date: 20230721
  Serious: Yes (Hospitalization)
  Sender: FDA-Public Use
  Company Number: US-TAKEDA-2023TUS004731

PATIENT
  Age: 74 Year
  Sex: Male

DRUGS (13)
  1. NINLARO [Suspect]
     Active Substance: IXAZOMIB CITRATE
     Indication: Plasma cell myeloma
     Dosage: 4 MILLIGRAM
     Route: 048
     Dates: start: 20221108
  2. REVLIMID [Suspect]
     Active Substance: LENALIDOMIDE
     Indication: Plasma cell myeloma
     Dosage: 25 MILLIGRAM
     Route: 065
  3. ALPRAZOLAM [Concomitant]
     Active Substance: ALPRAZOLAM
     Dosage: 0.5 MILLIGRAM
     Route: 065
  4. ELIQUIS [Concomitant]
     Active Substance: APIXABAN
     Dosage: 5 MILLIGRAM
     Route: 065
  5. FERROUS SULFATE [Concomitant]
     Active Substance: FERROUS SULFATE
     Dosage: 325 MILLIGRAM
     Route: 065
  6. GABAPENTIN [Concomitant]
     Active Substance: GABAPENTIN
     Dosage: 300 MILLIGRAM
     Route: 065
  7. LASIX [Concomitant]
     Active Substance: FUROSEMIDE
     Dosage: 40 MILLIGRAM
     Route: 065
  8. LEXAPRO [Concomitant]
     Active Substance: ESCITALOPRAM OXALATE
     Dosage: 20 MILLIGRAM
     Route: 065
  9. MAGNESIUM [Concomitant]
     Active Substance: MAGNESIUM
     Dosage: 30 MILLIGRAM
     Route: 065
  10. TAMSULOSIN [Concomitant]
     Active Substance: TAMSULOSIN
     Dosage: 0.4 MILLIGRAM
     Route: 065
  11. VITAMIN C [Concomitant]
     Active Substance: ASCORBIC ACID
     Dosage: 500 MILLIGRAM
     Route: 065
  12. VITAMIN D [Concomitant]
     Active Substance: VITAMIN D NOS
     Dosage: UNK
     Route: 065
  13. DEXAMETHASONE [Concomitant]
     Active Substance: DEXAMETHASONE
     Dosage: 2 MILLIGRAM
     Route: 065

REACTIONS (1)
  - General physical health deterioration [Unknown]

NARRATIVE: CASE EVENT DATE: 20230221
